FAERS Safety Report 5813996-8 (Version None)
Quarter: 2008Q3

REPORT INFORMATION
  Report Type: 
  Country: None (occurrence: None)
  Receive Date: 20080717
  Receipt Date: 20080705
  Transmission Date: 20090109
  Serious: Yes (Other)
  Sender: FDA-Public Use
  Company Number: US-PFIZER INC-2008027394

PATIENT
  Sex: Female
  Weight: 69.4 kg

DRUGS (12)
  1. LYRICA [Suspect]
     Indication: COMPLEX REGIONAL PAIN SYNDROME
     Route: 048
  2. LYRICA [Suspect]
     Indication: NEUROPATHY PERIPHERAL
  3. LYRICA [Suspect]
     Indication: PAIN
  4. VALIUM [Concomitant]
  5. ALL OTHER THERAPEUTIC PRODUCTS [Concomitant]
  6. ZOLOFT [Concomitant]
  7. ZYRTEC [Concomitant]
  8. CATAPRES [Concomitant]
  9. HYDROXYZINE [Concomitant]
  10. PRILOSEC [Concomitant]
  11. MIDODRINE [Concomitant]
  12. ATARAX [Concomitant]

REACTIONS (6)
  - DIASTOLIC DYSFUNCTION [None]
  - GENERALISED OEDEMA [None]
  - PAIN [None]
  - PAIN IN EXTREMITY [None]
  - PULMONARY HYPERTENSION [None]
  - WEIGHT INCREASED [None]
